FAERS Safety Report 10015208 (Version 1)
Quarter: 2014Q1

REPORT INFORMATION
  Report Type: Spontaneous
  Country: US (occurrence: US)
  Receive Date: 20140317
  Receipt Date: 20140317
  Transmission Date: 20141002
  Serious: No
  Sender: FDA-Public Use
  Company Number: US-PFIZER INC-2014076020

PATIENT
  Age: 76 Year
  Sex: Female

DRUGS (5)
  1. LYRICA [Suspect]
     Indication: SPINAL COLUMN STENOSIS
     Dosage: 50 MG, 3X/DAY
  2. LYRICA [Suspect]
     Indication: NEUROPATHY PERIPHERAL
     Dosage: 75 MG, 3X/DAY
  3. LYRICA [Suspect]
     Dosage: UNK, 3X/DAY
  4. IRBESARTAN [Concomitant]
     Indication: HYPERTENSION
     Dosage: 300 MG, DAILY
  5. AMLODIPINE [Concomitant]
     Indication: HYPERTENSION
     Dosage: 5 MG, DAILY

REACTIONS (2)
  - Muscle spasms [Unknown]
  - Pain [Unknown]
